FAERS Safety Report 24383123 (Version 1)
Quarter: 2024Q4

REPORT INFORMATION
  Report Type: Spontaneous
  Country: US (occurrence: US)
  Receive Date: 20241001
  Receipt Date: 20241001
  Transmission Date: 20250115
  Serious: No
  Sender: CATALYST PHARMA
  Company Number: US-CATALYST PHARMACEUTICALS-US-CATA-24-00391

PATIENT
  Sex: Male
  Weight: 58.503 kg

DRUGS (10)
  1. AGAMREE [Suspect]
     Active Substance: VAMOROLONE
     Indication: Duchenne muscular dystrophy
     Dosage: 7.5 ML 1X DAILY
     Route: 048
     Dates: start: 20240320
  2. CALCIUM [Concomitant]
     Active Substance: CALCIUM
     Indication: Bone disorder
     Dosage: 750 MG DAILY
     Route: 065
  3. FLONASE [Concomitant]
     Active Substance: FLUTICASONE PROPIONATE
     Indication: Product used for unknown indication
     Dosage: 1 SPRAY 2X A DAY
     Route: 065
  4. GABAPENTIN [Concomitant]
     Active Substance: GABAPENTIN
     Indication: Neuralgia
     Dosage: 100 MG 3 X DAY
     Route: 065
  5. GABAPENTIN [Concomitant]
     Active Substance: GABAPENTIN
     Dosage: 200 MG 3X A DAY
     Route: 065
  6. METOPROLOL TARTRATE [Concomitant]
     Active Substance: METOPROLOL TARTRATE
     Indication: Cardiovascular disorder
     Dosage: 75 MG 2 X DAY
     Route: 065
  7. POLYGLYCOLIC ACID [Concomitant]
     Active Substance: POLYGLYCOLIC ACID
     Indication: Constipation
     Dosage: AS NEEDED
     Route: 065
  8. VITAMIN D [Concomitant]
     Active Substance: VITAMIN D NOS
     Indication: Product used for unknown indication
     Dosage: 25 MCG DAILY
     Route: 065
  9. VITAMIN D [Concomitant]
     Active Substance: VITAMIN D NOS
     Dosage: 2000 UNITS DAILY
     Route: 065
  10. POLYETHYLENE GLYCOL [Concomitant]
     Active Substance: POLYETHYLENE GLYCOL
     Indication: Product used for unknown indication
     Dosage: 1 SCOOP AS NEEDED
     Route: 065

REACTIONS (2)
  - Pain [Not Recovered/Not Resolved]
  - Myalgia [Recovered/Resolved]

NARRATIVE: CASE EVENT DATE: 20240101
